FAERS Safety Report 21663864 (Version 3)
Quarter: 2023Q1

REPORT INFORMATION
  Report Type: Spontaneous
  Country: US (occurrence: None)
  Receive Date: 20221130
  Receipt Date: 20230227
  Transmission Date: 20230418
  Serious: Yes (Other)
  Sender: FDA-Public Use
  Company Number: US-Merck Healthcare KGaA-9367668

PATIENT
  Age: 40 Year
  Sex: Male
  Weight: 95 kg

DRUGS (2)
  1. MAVENCLAD [Suspect]
     Active Substance: CLADRIBINE
     Indication: Relapsing-remitting multiple sclerosis
     Dosage: YEAR ONE THERAPY
     Route: 048
     Dates: start: 20210516
  2. MAVENCLAD [Suspect]
     Active Substance: CLADRIBINE
     Dosage: YEAR TWO THERAPY: LAST DOSE PRIOR TO ADVERSE EVENT WAS 18 JUL 2022
     Route: 048
     Dates: end: 202207

REACTIONS (1)
  - Gastrointestinal stromal tumour [Not Recovered/Not Resolved]

NARRATIVE: CASE EVENT DATE: 20221101
